FAERS Safety Report 16752181 (Version 1)
Quarter: 2019Q3

REPORT INFORMATION
  Report Type: Spontaneous
  Country: US (occurrence: US)
  Receive Date: 20190828
  Receipt Date: 20190828
  Transmission Date: 20191005
  Serious: Yes (Hospitalization)
  Sender: FDA-Public Use
  Company Number: US-THE PROACTIV LLC-2073794

PATIENT
  Age: 37 Year
  Sex: Female

DRUGS (5)
  1. PROACTIVPLUS SKIN SMOOTHING EXFOLIATOR [Suspect]
     Active Substance: BENZOYL PEROXIDE
     Indication: ACNE
     Route: 061
     Dates: start: 2019, end: 2019
  2. PROACTIV SKIN PURIFYING MASK [Suspect]
     Active Substance: SULFUR
     Route: 061
     Dates: start: 2019, end: 2019
  3. PROACTIV CLARIFYING NIGHT ACNE TREATMENT [Suspect]
     Active Substance: SALICYLIC ACID
     Route: 061
     Dates: start: 2019, end: 2019
  4. ANTIBIOTICS [Concomitant]
     Active Substance: UNSPECIFIED INGREDIENT
  5. PROACTIV PLUS COMPLEXION PERFECTING HYDRATOR [Suspect]
     Active Substance: SALICYLIC ACID
     Route: 061
     Dates: start: 2019, end: 2019

REACTIONS (2)
  - Abscess [Not Recovered/Not Resolved]
  - Acne [Not Recovered/Not Resolved]

NARRATIVE: CASE EVENT DATE: 2019
